FAERS Safety Report 20974684 (Version 2)
Quarter: 2022Q3

REPORT INFORMATION
  Report Type: Report from Study
  Country: BR (occurrence: BR)
  Receive Date: 20220617
  Receipt Date: 20220623
  Transmission Date: 20221027
  Serious: Yes (Hospitalization, Other)
  Sender: FDA-Public Use
  Company Number: BR-NOVARTISPH-NVSC2022BR137285

PATIENT
  Sex: Male

DRUGS (2)
  1. TAFINLAR [Suspect]
     Active Substance: DABRAFENIB MESYLATE
     Indication: Malignant melanoma
     Dosage: UNK
     Route: 065
  2. MEKINIST [Suspect]
     Active Substance: TRAMETINIB DIMETHYL SULFOXIDE
     Indication: Malignant melanoma
     Dosage: UNK
     Route: 065

REACTIONS (11)
  - Malaise [Unknown]
  - Syncope [Unknown]
  - Feeding disorder [Unknown]
  - Dysstasia [Unknown]
  - Blister [Unknown]
  - Skin infection [Unknown]
  - Constipation [Recovered/Resolved]
  - Asthenia [Unknown]
  - Dizziness postural [Unknown]
  - Skin lesion [Unknown]
  - Vertigo [Unknown]
